FAERS Safety Report 6407560-X (Version None)
Quarter: 2009Q4

REPORT INFORMATION
  Report Type: 
  Country: None (occurrence: None)
  Receive Date: 20091020
  Receipt Date: 20091013
  Transmission Date: 20100525
  Serious: Yes (Death)
  Sender: FDA-Public Use
  Company Number: TW-CUBIST-2009S1000447

PATIENT
  Age: 67 Year
  Sex: Female

DRUGS (5)
  1. CUBICIN [Suspect]
     Indication: STAPHYLOCOCCAL BACTERAEMIA
     Route: 042
     Dates: start: 20091002, end: 20091005
  2. CUBICIN [Suspect]
     Indication: OSTEOMYELITIS
     Route: 042
     Dates: start: 20091002, end: 20091005
  3. CUBICIN [Suspect]
     Indication: EMPYEMA
     Route: 042
     Dates: start: 20091002, end: 20091005
  4. CUBICIN [Suspect]
     Indication: OFF LABEL USE
     Route: 042
     Dates: start: 20091002, end: 20091005
  5. CEFTAZIDIME [Concomitant]
     Indication: INFECTION
     Route: 042
     Dates: start: 20091002, end: 20091005

REACTIONS (1)
  - SEPTIC SHOCK [None]
